FAERS Safety Report 7969044-7 (Version None)
Quarter: 2011Q4

REPORT INFORMATION
  Report Type: 
  Country: None (occurrence: None)
  Receive Date: 20111209
  Receipt Date: 20111129
  Transmission Date: 20120403
  Serious: No
  Sender: FDA-Public Use
  Company Number: US-US-EMD SERONO, INC.-7091057

PATIENT
  Sex: Female
  Weight: 109 kg

DRUGS (15)
  1. CYMBALTA [Concomitant]
  2. LYRICA [Concomitant]
     Route: 048
  3. AMLODIPINE [Concomitant]
     Route: 048
  4. RANITIDINE HCL [Concomitant]
  5. VITAMIN D [Concomitant]
     Route: 048
  6. DIAZEPAM [Concomitant]
     Route: 048
  7. PRAVASTATIN [Concomitant]
     Route: 048
  8. DOXYCYCLINE HYCLATE [Concomitant]
     Dates: start: 20110531
  9. MELOXICAM [Concomitant]
     Route: 048
  10. REBIF [Suspect]
     Indication: MULTIPLE SCLEROSIS
     Route: 058
     Dates: start: 20101007
  11. METFORMIN HCL [Concomitant]
  12. HYDROCHLOROTHIAZIDE [Concomitant]
  13. MULTI-VITAMIN [Concomitant]
  14. LANTUS [Concomitant]
  15. LISINOPRIL [Concomitant]

REACTIONS (5)
  - ARTHROPATHY [None]
  - INJECTION SITE SCAB [None]
  - INJECTION SITE DISCOLOURATION [None]
  - MUSCULAR WEAKNESS [None]
  - INJECTION SITE RASH [None]
